FAERS Safety Report 6711683-5 (Version None)
Quarter: 2010Q2

REPORT INFORMATION
  Report Type: 
  Country: None (occurrence: None)
  Receive Date: 20100505
  Receipt Date: 20100426
  Transmission Date: 20101027
  Serious: Yes (Death)
  Sender: FDA-Public Use
  Company Number: JP-ROCHE-691516

PATIENT
  Sex: Male

DRUGS (11)
  1. CAPECITABINE [Suspect]
     Indication: COLON CANCER
     Route: 048
     Dates: start: 20090813, end: 20090826
  2. CAPECITABINE [Suspect]
     Route: 048
     Dates: start: 20090903, end: 20090917
  3. CAPECITABINE [Suspect]
     Route: 048
     Dates: start: 20090924, end: 20091006
  4. MAGMITT [Concomitant]
     Route: 048
     Dates: start: 20090522
  5. BIOFERMIN [Concomitant]
     Route: 048
     Dates: start: 20090522
  6. PYRIDOXAL PHOSPHATE [Concomitant]
     Dosage: DOSE: 6 DF
     Route: 048
     Dates: start: 20090813, end: 20091006
  7. UREPEARL [Concomitant]
     Dosage: NOTE: UNCERTAINTY
     Route: 061
     Dates: start: 20090813, end: 20091006
  8. GLIBENCLAMIDE [Concomitant]
     Route: 048
  9. CERNILTON [Concomitant]
     Dosage: DOSE: 2 DF
     Route: 048
  10. METFORMIN HCL [Concomitant]
     Dosage: DRUG NAEM: NELBIS (METFORMIN HYDROCHLORIDE)
     Route: 048
  11. AMLODIPINE [Concomitant]
     Route: 048

REACTIONS (3)
  - ILEUS PARALYTIC [None]
  - LUNG DISORDER [None]
  - PNEUMONIA ASPIRATION [None]
